FAERS Safety Report 25215172 (Version 1)
Quarter: 2025Q2

REPORT INFORMATION
  Report Type: Spontaneous
  Country: US (occurrence: US)
  Receive Date: 20250418
  Receipt Date: 20250418
  Transmission Date: 20250717
  Serious: Yes (Hospitalization, Other)
  Sender: MERCK SHARP & DOHME LLC
  Company Number: US-009507513-2266710

PATIENT
  Sex: Male
  Weight: 81.5 kg

DRUGS (1)
  1. NOXAFIL [Suspect]
     Active Substance: POSACONAZOLE
     Indication: Prophylaxis
     Route: 048

REACTIONS (2)
  - Ejection fraction decreased [Recovering/Resolving]
  - Cardiogenic shock [Unknown]
